FAERS Safety Report 13031573 (Version 3)
Quarter: 2017Q1

REPORT INFORMATION
  Report Type: Spontaneous
  Country: GB (occurrence: GB)
  Receive Date: 20161215
  Receipt Date: 20170202
  Transmission Date: 20170428
  Serious: Yes (Other)
  Sender: FDA-Public Use
  Company Number: GB-GILEAD-2016-0247308

PATIENT
  Age: 75 Year
  Sex: Male

DRUGS (12)
  1. OMEPRAZOLE. [Concomitant]
     Active Substance: OMEPRAZOLE
     Dates: end: 20170120
  2. PROCHLORPERAZINE. [Concomitant]
     Active Substance: PROCHLORPERAZINE
     Indication: DIZZINESS
  3. EZETIMIBE. [Concomitant]
     Active Substance: EZETIMIBE
     Dates: end: 20170111
  4. FELODIPINE. [Concomitant]
     Active Substance: FELODIPINE
     Dates: end: 20161102
  5. VENTOLIN [Concomitant]
     Active Substance: ALBUTEROL SULFATE
     Dates: end: 20161124
  6. GAVISCON ADVANCE PEPPERMINT [Concomitant]
     Route: 060
     Dates: end: 20170120
  7. PROCHLORPERAZINE. [Concomitant]
     Active Substance: PROCHLORPERAZINE
     Indication: NAUSEA
     Dates: end: 20160919
  8. RANOLAZINE [Suspect]
     Active Substance: RANOLAZINE
     Indication: PRODUCT USED FOR UNKNOWN INDICATION
     Route: 048
     Dates: start: 20161109, end: 20161119
  9. FOLIC ACID. [Concomitant]
     Active Substance: FOLIC ACID
     Dates: end: 20161021
  10. APIXABAN [Concomitant]
     Active Substance: APIXABAN
     Dates: end: 20170120
  11. CANDESARTAN [Concomitant]
     Active Substance: CANDESARTAN
     Dates: end: 20161102
  12. FERROUS SULFATE. [Concomitant]
     Active Substance: FERROUS SULFATE
     Dates: end: 20161228

REACTIONS (7)
  - Fatigue [Recovered/Resolved]
  - Condition aggravated [Recovered/Resolved]
  - Unevaluable event [Recovered/Resolved]
  - Chromaturia [Recovered/Resolved]
  - Faeces discoloured [Recovered/Resolved]
  - Dyspnoea [Recovered/Resolved]
  - Aortic stenosis [Recovered/Resolved]
